FAERS Safety Report 25189786 (Version 1)
Quarter: 2025Q2

REPORT INFORMATION
  Report Type: Spontaneous
  Country: JP (occurrence: JP)
  Receive Date: 20250411
  Receipt Date: 20250411
  Transmission Date: 20250717
  Serious: Yes (Life-Threatening)
  Sender: BAYER
  Company Number: JP-BAYER-2025A049050

PATIENT
  Age: 6 Decade

DRUGS (3)
  1. ADEMPAS [Suspect]
     Active Substance: RIOCIGUAT
     Indication: Pulmonary hypertension
     Dosage: DAILY DOSE 4.5 MG
     Route: 048
  2. EDOXABAN TOSYLATE [Concomitant]
     Active Substance: EDOXABAN TOSYLATE
     Route: 048
  3. WARFARIN [Concomitant]
     Active Substance: WARFARIN

REACTIONS (2)
  - Dyspnoea [Recovered/Resolved]
  - Pulmonary arterial pressure increased [Recovered/Resolved]
